FAERS Safety Report 24051456 (Version 1)
Quarter: 2024Q3

REPORT INFORMATION
  Report Type: Spontaneous
  Country: US (occurrence: US)
  Receive Date: 20240704
  Receipt Date: 20240704
  Transmission Date: 20241017
  Serious: No
  Sender: JOHNSON AND JOHNSON
  Company Number: US-JNJFOC-20240677888

PATIENT
  Sex: Male

DRUGS (1)
  1. INVEGA [Suspect]
     Active Substance: PALIPERIDONE
     Indication: Product used for unknown indication
     Route: 048

REACTIONS (11)
  - Sympathomimetic effect [Unknown]
  - Psychotic disorder [Unknown]
  - Tendon rupture [Unknown]
  - Ligament rupture [Unknown]
  - Weight increased [Unknown]
  - Agitation [Unknown]
  - Withdrawal syndrome [Unknown]
  - Disturbance in social behaviour [Unknown]
  - Screaming [Unknown]
  - Mood altered [Unknown]
  - Disorganised speech [Unknown]
